FAERS Safety Report 21690828 (Version 1)
Quarter: 2022Q4

REPORT INFORMATION
  Report Type: Other
  Country: CA (occurrence: CA)
  Receive Date: 20221207
  Receipt Date: 20221207
  Transmission Date: 20230113
  Serious: Yes (Other)
  Sender: FDA-Public Use
  Company Number: CA-HLS-202001070

PATIENT
  Age: 45 Year
  Sex: Male

DRUGS (6)
  1. DIVALPROEX SODIUM [Concomitant]
     Active Substance: DIVALPROEX SODIUM
     Dosage: NOT SPECIFIED
     Route: 065
  2. NYTOL [Suspect]
     Active Substance: DIPHENHYDRAMINE HYDROCHLORIDE
     Indication: Product used for unknown indication
     Dosage: NOT SPECIFIED
     Route: 065
  3. NYTOL [Suspect]
     Active Substance: DIPHENHYDRAMINE HYDROCHLORIDE
     Indication: Product used for unknown indication
     Route: 048
  4. GABAPENTIN [Suspect]
     Active Substance: GABAPENTIN
     Indication: Product used for unknown indication
     Dosage: 1200.0 MILLIGRAM
     Route: 065
  5. CLONAZEPAM [Suspect]
     Active Substance: CLONAZEPAM
     Indication: Product used for unknown indication
     Dosage: 4.0 MILLIGRAM
     Route: 065
  6. CLOZAPINE [Suspect]
     Active Substance: CLOZAPINE
     Indication: Product used for unknown indication
     Dosage: 400.0 MILLIGRAM
     Route: 065

REACTIONS (8)
  - Drug interaction [Recovered/Resolved]
  - Drug withdrawal syndrome [Recovered/Resolved]
  - Leukopenia [Recovered/Resolved]
  - Neutropenia [Recovered/Resolved]
  - Neutrophil count decreased [Recovered/Resolved]
  - Overdose [Recovered/Resolved]
  - Toxicity to various agents [Recovered/Resolved]
  - White blood cell count decreased [Recovered/Resolved]
